FAERS Safety Report 10642595 (Version 1)
Quarter: 2014Q4

REPORT INFORMATION
  Report Type: Spontaneous
  Country: US (occurrence: None)
  Receive Date: 20141121
  Receipt Date: 20141121
  Transmission Date: 20150529
  Serious: No
  Sender: FDA-Public Use
  Company Number: 163-10004-14070138

PATIENT
  Age: 55 Year
  Sex: Male
  Weight: 81.65 kg

DRUGS (7)
  1. TECFIDERA (DIM,ETHYL FUMARATE) [Concomitant]
  2. NEXIUM [Concomitant]
     Active Substance: ESOMEPRAZOLE MAGNESIUM
  3. AMBIEN [Concomitant]
     Active Substance: ZOLPIDEM TARTRATE
  4. NAPROXEN (NAPROXEN) [Concomitant]
     Active Substance: NAPROXEN
  5. CELEXA (CITALOPRA, HYDROBROMIDE) [Concomitant]
  6. OTEZLA [Suspect]
     Active Substance: APREMILAST
     Indication: PSORIATIC ARTHROPATHY
     Dosage: STARTER PACK, NOT PROVIDED,PO
     Route: 048
     Dates: start: 20140626
  7. VITAMIN D (ERGOCALCIFEROL) [Concomitant]
     Active Substance: ERGOCALCIFEROL

REACTIONS (5)
  - Feeling abnormal [None]
  - Tremor [None]
  - Insomnia [None]
  - Tachyphrenia [None]
  - Anxiety [None]

NARRATIVE: CASE EVENT DATE: 20140626
